FAERS Safety Report 17662530 (Version 2)
Quarter: 2020Q2

REPORT INFORMATION
  Report Type: Spontaneous
  Country: US (occurrence: US)
  Receive Date: 20200413
  Receipt Date: 20200414
  Transmission Date: 20200713
  Serious: Yes (Death)
  Sender: FDA-Public Use
  Company Number: US-PFIZER INC-2020149532

PATIENT
  Age: 17 Year
  Sex: Female
  Weight: 40.82 kg

DRUGS (4)
  1. METHYLERGONOVINE MALEATE. [Concomitant]
     Active Substance: METHYLERGONOVINE MALEATE
     Indication: ANAESTHESIA
     Dosage: 1 ML, UNK
     Dates: start: 1972
  2. TRIFLUPROMAZINE HYDROCHLORIDE. [Concomitant]
     Active Substance: TRIFLUPROMAZINE HYDROCHLORIDE
     Indication: ANAESTHESIA
     Dosage: 2.5 ML, UNK
     Dates: start: 1972
  3. LIDOCAINE HCL [Suspect]
     Active Substance: LIDOCAINE HYDROCHLORIDE
     Indication: ANAESTHESIA
     Dosage: 400 MG, UNK (^MATERNAL DEATHS ASSOCIATED WITH PARACERVICAL BLOCK ANESTHESIA, 20 ML. OF 2 PERCENT)
     Route: 042
     Dates: start: 1972
  4. PENTAZOCIN [PENTAZOCINE LACTATE] [Concomitant]
     Indication: ANAESTHESIA
     Dosage: 1 ML, UNK
     Route: 042
     Dates: start: 1972

REACTIONS (3)
  - Seizure [Fatal]
  - Overdose [Fatal]
  - Toxicity to various agents [Fatal]

NARRATIVE: CASE EVENT DATE: 1972
